FAERS Safety Report 25604222 (Version 4)
Quarter: 2025Q3

REPORT INFORMATION
  Report Type: Spontaneous
  Country: US (occurrence: US)
  Receive Date: 20250725
  Receipt Date: 20250801
  Transmission Date: 20251020
  Serious: Yes (Hospitalization, Other)
  Sender: RECKITT BENCKISER
  Company Number: US-PROD-AS2-212756134-20-25-USA-RB-0014163

PATIENT
  Age: 78 Year
  Sex: Female

DRUGS (1)
  1. BIOFREEZE [Suspect]
     Active Substance: MENTHOL
     Indication: Myalgia
     Route: 065
     Dates: start: 20250412, end: 2025

REACTIONS (4)
  - Gangrene [Recovering/Resolving]
  - Pain [Recovering/Resolving]
  - Skin ulcer [Recovered/Resolved]
  - Product complaint [Unknown]

NARRATIVE: CASE EVENT DATE: 20250412
